FAERS Safety Report 23558881 (Version 1)
Quarter: 2024Q1

REPORT INFORMATION
  Report Type: Spontaneous
  Country: CA (occurrence: CA)
  Receive Date: 20240223
  Receipt Date: 20240223
  Transmission Date: 20240410
  Serious: Yes (Death, Life-Threatening)
  Sender: FDA-Public Use
  Company Number: CA-TEVA-VS-3161111

PATIENT
  Age: 37 Year
  Sex: Male

DRUGS (2)
  1. LEVETIRACETAM [Suspect]
     Active Substance: LEVETIRACETAM
     Indication: Seizure prophylaxis
     Route: 065
  2. SEPTRA DS [Suspect]
     Active Substance: SULFAMETHOXAZOLE\TRIMETHOPRIM
     Indication: Pneumonia
     Route: 048

REACTIONS (18)
  - Acute kidney injury [Fatal]
  - Bacteraemia [Fatal]
  - Biopsy skin [Fatal]
  - Central venous catheterisation [Fatal]
  - Citrobacter test positive [Fatal]
  - Complication associated with device [Fatal]
  - Drug reaction with eosinophilia and systemic symptoms [Fatal]
  - Eosinophil count increased [Fatal]
  - Extremity necrosis [Fatal]
  - Haematoma [Fatal]
  - Haemofiltration [Fatal]
  - Hepatic enzyme increased [Fatal]
  - Livedo reticularis [Fatal]
  - Oral mucosal exfoliation [Fatal]
  - Rash maculo-papular [Fatal]
  - Skin exfoliation [Fatal]
  - Toxic epidermal necrolysis [Fatal]
  - Wound closure [Fatal]
